FAERS Safety Report 6357194-0 (Version None)
Quarter: 2009Q3

REPORT INFORMATION
  Report Type: 
  Country: None (occurrence: None)
  Receive Date: 20090911
  Receipt Date: 20090827
  Transmission Date: 20100115
  Serious: Yes (Other)
  Sender: FDA-Public Use
  Company Number: 230252J09USA

PATIENT
  Age: 38 Year
  Sex: Female

DRUGS (3)
  1. REBIF [Suspect]
     Indication: MULTIPLE SCLEROSIS
     Dosage: 22 MCG, ; 44 MCG, 3 IN 1 WEEKS, SUBCUTANEOUS
     Route: 058
     Dates: start: 20071114
  2. AMIBEN -CR (ZOLPIDEM TARTRATE) [Concomitant]
  3. TYLENOL ARTHRITIS (PARACETAMOL) [Concomitant]

REACTIONS (11)
  - CONDITION AGGRAVATED [None]
  - DYSPNOEA [None]
  - FEELING ABNORMAL [None]
  - INFLUENZA LIKE ILLNESS [None]
  - IRRITABILITY [None]
  - MULTIPLE SCLEROSIS [None]
  - NASAL SEPTUM DEVIATION [None]
  - NECK PAIN [None]
  - PAIN [None]
  - PHARYNGEAL OEDEMA [None]
  - THROAT TIGHTNESS [None]
